FAERS Safety Report 9590666 (Version 1)
Quarter: 2013Q4

REPORT INFORMATION
  Report Type: Spontaneous
  Country: US (occurrence: US)
  Receive Date: 20131003
  Receipt Date: 20131003
  Transmission Date: 20140711
  Serious: No
  Sender: FDA-Public Use
  Company Number: US-AMGEN-USASP2012078210

PATIENT
  Sex: Female
  Weight: 69.39 kg

DRUGS (16)
  1. ENBREL [Suspect]
     Indication: RHEUMATOID ARTHRITIS
     Dosage: 50 MG, QWK
     Route: 058
  2. FOLIC ACID [Concomitant]
     Dosage: 1 MG, UNK
  3. LIPITOR [Concomitant]
     Dosage: 10 MG, UNK
  4. ARAVA [Concomitant]
     Dosage: UNK
  5. PRILOSEC                           /00661201/ [Concomitant]
     Dosage: 10 MG, UNK
  6. NORVASC [Concomitant]
     Dosage: 2.5 MG, UNK
  7. TOPROL [Concomitant]
     Dosage: 25 MG, UNK
  8. ZOLOFT [Concomitant]
     Dosage: 25 MG, UNK
  9. SPIRIVA [Concomitant]
     Dosage: UNK
  10. VITAMIN B 12 [Concomitant]
     Dosage: 1000 CR
  11. VITAMIN B COMPLEX [Concomitant]
     Dosage: UNK
  12. MULTIVITAMIN                       /07504101/ [Concomitant]
     Dosage: UNK
  13. ASPIRIN LOW [Concomitant]
     Dosage: 81 MG EC, UNK
  14. LEFLUNOMIDE [Concomitant]
     Dosage: 10 MG, UNK
  15. PREDNISONE [Concomitant]
     Dosage: 1 MG, UNK
  16. SOY ISOFLAVONES                    /06266001/ [Concomitant]
     Dosage: 50 MG, UNK

REACTIONS (6)
  - Pain in extremity [Unknown]
  - Arthralgia [Unknown]
  - Oedema peripheral [Unknown]
  - Joint swelling [Unknown]
  - Inflammation [Unknown]
  - Arthritis [Unknown]
